FAERS Safety Report 4982024-9 (Version None)
Quarter: 2006Q2

REPORT INFORMATION
  Report Type: 
  Country: None (occurrence: None)
  Receive Date: 20060424
  Receipt Date: 20060424
  Transmission Date: 20061013
  Serious: Yes (Other)
  Sender: FDA-Public Use
  Company Number: None

PATIENT
  Age: 58 Year
  Sex: Female
  Weight: 49.8957 kg

DRUGS (1)
  1. ULTRACET [Suspect]
     Indication: ARTHRITIS
     Dosage: 1-2 RED/ORANGE PILLS   DAILY
     Dates: start: 20030101, end: 20051124

REACTIONS (9)
  - ABNORMAL BEHAVIOUR [None]
  - AFFECT LABILITY [None]
  - AGGRESSION [None]
  - AMNESIA [None]
  - CONFUSIONAL STATE [None]
  - DEPERSONALISATION [None]
  - HYPOAESTHESIA [None]
  - PERSONALITY CHANGE [None]
  - STUPOR [None]
